FAERS Safety Report 5933562-3 (Version None)
Quarter: 2008Q4

REPORT INFORMATION
  Report Type: 
  Country: None (occurrence: None)
  Receive Date: 20081024
  Receipt Date: 20081020
  Transmission Date: 20090506
  Serious: Yes (Death)
  Sender: FDA-Public Use
  Company Number: 2008EU001784

PATIENT

DRUGS (1)
  1. PROTOPIC [Suspect]
     Dosage: 0.1 %, PRN, TRANSPLACENTAL
     Route: 064
     Dates: start: 20070301, end: 20080101

REACTIONS (2)
  - MATERNAL DRUGS AFFECTING FOETUS [None]
  - MENINGOMYELOCELE [None]
